FAERS Safety Report 23840838 (Version 1)
Quarter: 2024Q2

REPORT INFORMATION
  Report Type: Spontaneous
  Country: CN (occurrence: None)
  Receive Date: 20240510
  Receipt Date: 20240510
  Transmission Date: 20240716
  Serious: Yes (Hospitalization)
  Sender: FDA-Public Use
  Company Number: CN-ROCHE-3558527

PATIENT
  Age: 50 Year
  Sex: Female
  Weight: 54 kg

DRUGS (3)
  1. MABTHERA [Suspect]
     Active Substance: RITUXIMAB
     Indication: Lymphoma
     Route: 041
     Dates: start: 20240325
  2. OXALIPLATIN [Suspect]
     Active Substance: OXALIPLATIN
     Indication: Lymphoma
     Route: 041
     Dates: start: 20240326
  3. GEMCITABINE HYDROCHLORIDE [Suspect]
     Active Substance: GEMCITABINE HYDROCHLORIDE
     Indication: Lymphoma
     Route: 041
     Dates: start: 20240325

REACTIONS (1)
  - Granulocyte count decreased [Unknown]

NARRATIVE: CASE EVENT DATE: 20240415
